FAERS Safety Report 7890213-9 (Version None)
Quarter: 2011Q4

REPORT INFORMATION
  Report Type: 
  Country: None (occurrence: None)
  Receive Date: 20111103
  Receipt Date: 20110729
  Transmission Date: 20120403
  Serious: No
  Sender: FDA-Public Use
  Company Number: US-AMGEN-USASP2011030117

PATIENT
  Age: 76 Year
  Sex: Female

DRUGS (2)
  1. ENBREL [Suspect]
     Indication: PSORIATIC ARTHROPATHY
  2. ENBREL [Suspect]
     Indication: PSORIASIS
     Dosage: 50 MG, QWK
     Dates: start: 20110520

REACTIONS (9)
  - CONJUNCTIVITIS [None]
  - SPUTUM DISCOLOURED [None]
  - OTITIS MEDIA [None]
  - ABDOMINAL PAIN LOWER [None]
  - PSORIASIS [None]
  - SINUS CONGESTION [None]
  - COUGH [None]
  - PSORIATIC ARTHROPATHY [None]
  - URINARY TRACT INFECTION [None]
